FAERS Safety Report 20405802 (Version 1)
Quarter: 2022Q1

REPORT INFORMATION
  Report Type: Report from Study
  Country: MX (occurrence: MX)
  Receive Date: 20220131
  Receipt Date: 20220131
  Transmission Date: 20220423
  Serious: Yes (Hospitalization)
  Sender: FDA-Public Use
  Company Number: MX-NOVARTISPH-NVSC2022MX008432

PATIENT
  Age: 35 Year
  Sex: Male
  Weight: 63 kg

DRUGS (5)
  1. IMATINIB [Suspect]
     Active Substance: IMATINIB
     Indication: Chronic myeloid leukaemia
     Dosage: 200 MG, Q12H
     Route: 048
     Dates: end: 2016
  2. IMATINIB [Suspect]
     Active Substance: IMATINIB
     Dosage: 300 MG, Q12H
     Route: 048
  3. IMATINIB [Suspect]
     Active Substance: IMATINIB
     Dosage: 400 MG (OF 100 MG, IN THE MORNING)
     Route: 048
     Dates: start: 20160512, end: 20220111
  4. IMATINIB [Suspect]
     Active Substance: IMATINIB
     Dosage: 300 MG, Q12H (OF 100 MG)
     Route: 048
     Dates: start: 20220111
  5. ALLOPURINOL [Concomitant]
     Active Substance: ALLOPURINOL
     Indication: Product used for unknown indication
     Dosage: 300 MG, QD
     Route: 048
     Dates: start: 20220114

REACTIONS (10)
  - Platelet count increased [Recovering/Resolving]
  - Asthenia [Recovering/Resolving]
  - Drug ineffective [Recovered/Resolved]
  - Pulmonary oedema [Recovered/Resolved]
  - Renal disorder [Recovered/Resolved]
  - Inappropriate schedule of product administration [Unknown]
  - Blood potassium decreased [Unknown]
  - Pulmonary pain [Recovering/Resolving]
  - Off label use [Unknown]
  - Anaemia [Unknown]

NARRATIVE: CASE EVENT DATE: 20211201
